FAERS Safety Report 17395584 (Version 1)
Quarter: 2020Q1

REPORT INFORMATION
  Report Type: Spontaneous
  Country: JP (occurrence: JP)
  Receive Date: 20200210
  Receipt Date: 20200210
  Transmission Date: 20200409
  Serious: Yes (Other)
  Sender: FDA-Public Use
  Company Number: NVSJ2019JP006040

PATIENT
  Age: 78 Year
  Sex: Male
  Weight: 46.4 kg

DRUGS (4)
  1. TRICHLORMETHIAZIDE [Concomitant]
     Active Substance: TRICHLORMETHIAZIDE
     Indication: HYPERTENSION
     Dosage: 1 MG, QD (DAILY ADMINISTRATION)
     Route: 048
  2. EQUMET [Suspect]
     Active Substance: METFORMIN HYDROCHLORIDE\VILDAGLIPTIN
     Indication: TYPE 2 DIABETES MELLITUS
     Dosage: 1 DF:METFORMIN UNKNOWN/VILDAGLIPTIN 50MG,BID(DAILY ADMINISTRATION)
     Route: 048
     Dates: start: 20181222, end: 20190831
  3. AMLODIPINE [Concomitant]
     Active Substance: AMLODIPINE BESYLATE
     Indication: HYPERTENSION
     Dosage: 5 MG, BID (DAILY ADMINISTRATION)
     Route: 048
  4. DOXAZOSIN [Concomitant]
     Active Substance: DOXAZOSIN MESYLATE
     Indication: HYPERTENSION
     Dosage: 2 MG, QD (DAILY ADMINISTRATION)
     Route: 048

REACTIONS (6)
  - Pemphigoid [Recovering/Resolving]
  - Blister [Unknown]
  - Dermatitis [Unknown]
  - Erythema [Unknown]
  - Blister rupture [Unknown]
  - Pruritus [Unknown]

NARRATIVE: CASE EVENT DATE: 201908
